FAERS Safety Report 11952378 (Version 1)
Quarter: 2016Q1

REPORT INFORMATION
  Report Type: Spontaneous
  Country: US (occurrence: US)
  Receive Date: 20160125
  Receipt Date: 20160125
  Transmission Date: 20160526
  Serious: Yes (Death, Hospitalization)
  Sender: FDA-Public Use
  Company Number: US-PFIZER INC-2016038387

PATIENT
  Age: 85 Year
  Sex: Female
  Weight: 73 kg

DRUGS (1)
  1. REVATIO [Suspect]
     Active Substance: SILDENAFIL CITRATE
     Indication: CARDIAC DISORDER
     Dates: start: 2007, end: 20150704

REACTIONS (4)
  - Cerebrovascular accident [Unknown]
  - Respiratory disorder [Unknown]
  - Product use issue [Unknown]
  - Myocardial infarction [Fatal]

NARRATIVE: CASE EVENT DATE: 2007
